FAERS Safety Report 9028223 (Version 4)
Quarter: 2013Q2

REPORT INFORMATION
  Report Type: Spontaneous
  Country: US (occurrence: US)
  Receive Date: 20130124
  Receipt Date: 20130523
  Transmission Date: 20140414
  Serious: No
  Sender: FDA-Public Use
  Company Number: US-PFIZER INC-2013026623

PATIENT
  Age: 58 Year
  Sex: Female

DRUGS (3)
  1. ZOLOFT [Suspect]
     Indication: DEATH OF RELATIVE
     Dosage: 200 MG, DAILY,
     Route: 048
  2. ZOLOFT [Suspect]
     Indication: NEUROPATHY PERIPHERAL
  3. ZOLOFT [Suspect]
     Indication: DIABETES MELLITUS

REACTIONS (3)
  - Drug effect delayed [Recovered/Resolved]
  - Off label use [Unknown]
  - Therapeutic response unexpected [Unknown]
